FAERS Safety Report 21860226 (Version 1)
Quarter: 2023Q1

REPORT INFORMATION
  Report Type: Spontaneous
  Country: US (occurrence: US)
  Receive Date: 20230113
  Receipt Date: 20230113
  Transmission Date: 20230418
  Serious: No
  Sender: FDA-Public Use
  Company Number: US-PFIZER INC-202300008486

PATIENT
  Age: 65 Year
  Sex: Male

DRUGS (3)
  1. PAXLOVID [Suspect]
     Active Substance: NIRMATRELVIR\RITONAVIR
     Indication: COVID-19 treatment
     Dosage: UNK
     Dates: start: 20220923, end: 20220927
  2. BYSTOLIC [Concomitant]
     Active Substance: NEBIVOLOL HYDROCHLORIDE
     Dosage: UNK
     Dates: start: 20220114
  3. VALSARTAN [Concomitant]
     Active Substance: VALSARTAN
     Dosage: UNK
     Dates: start: 20190501

REACTIONS (2)
  - COVID-19 [Recovered/Resolved]
  - Disease recurrence [Recovered/Resolved]

NARRATIVE: CASE EVENT DATE: 20221001
